FAERS Safety Report 4824209-8 (Version None)
Quarter: 2005Q4

REPORT INFORMATION
  Report Type: 
  Country: None (occurrence: None)
  Receive Date: 20051108
  Receipt Date: 20051027
  Transmission Date: 20060501
  Serious: Yes (Hospitalization, Other)
  Sender: FDA-Public Use
  Company Number: USA050494898

PATIENT
  Age: 84 Year
  Sex: Female
  Weight: 80 kg

DRUGS (12)
  1. FORTEO [Suspect]
     Indication: OSTEOPOROSIS
     Dosage: 20 UG DAY
     Dates: start: 20050315
  2. EVISTA [Suspect]
  3. PROPOXYPHENE HCL AND ACETAMINOPHEN [Concomitant]
  4. ZOCOR [Concomitant]
  5. ACIPHEX [Concomitant]
  6. VASOTEC [Concomitant]
  7. POTASSIUM CHLORIDE [Concomitant]
  8. ALLEGRA [Concomitant]
  9. OSCAL (CALCIUM CARBONATE) [Concomitant]
  10. DETROL [Concomitant]
  11. PLAVIX (CLOPIODGREL SULFATE) [Concomitant]
  12. NORVASC [Concomitant]

REACTIONS (10)
  - BRADYCARDIA [None]
  - CARDIAC PACEMAKER INSERTION [None]
  - CONTUSION [None]
  - COUGH [None]
  - DRUG DOSE OMISSION [None]
  - DYSPNOEA [None]
  - FALL [None]
  - HEAD INJURY [None]
  - PAIN [None]
  - SHOULDER PAIN [None]
